FAERS Safety Report 16528595 (Version 3)
Quarter: 2019Q3

REPORT INFORMATION
  Report Type: Report from Study
  Country: DE (occurrence: DE)
  Receive Date: 20190703
  Receipt Date: 20190905
  Transmission Date: 20191004
  Serious: Yes (Other)
  Sender: FDA-Public Use
  Company Number: PHHY2014DE052086

PATIENT
  Age: 49 Year
  Sex: Male

DRUGS (2)
  1. ZARZIO [Suspect]
     Active Substance: FILGRASTIM
     Dosage: 3420 UG, TOTAL
     Route: 058
     Dates: start: 20130808, end: 20130812
  2. ZARZIO [Suspect]
     Active Substance: FILGRASTIM
     Indication: STEM CELL DONOR
     Dosage: 3420 UG, TOTAL
     Route: 058
     Dates: start: 20130808, end: 20130812

REACTIONS (9)
  - Bone pain [Recovered/Resolved]
  - Rash [Recovered/Resolved]
  - Tunnel vision [Recovered/Resolved]
  - Bone pain [Recovered/Resolved]
  - Nasopharyngitis [Recovered/Resolved]
  - Muscle tightness [Recovered/Resolved]
  - Bone pain [Recovered/Resolved]
  - Bronchitis [Not Recovered/Not Resolved]
  - Pertussis [Recovered/Resolved]

NARRATIVE: CASE EVENT DATE: 20130809
